FAERS Safety Report 23089345 (Version 1)
Quarter: 2023Q4

REPORT INFORMATION
  Report Type: Report from Study
  Country: US (occurrence: US)
  Receive Date: 20231020
  Receipt Date: 20231020
  Transmission Date: 20240109
  Serious: Yes (Hospitalization, Other)
  Sender: FDA-Public Use
  Company Number: US-ASTELLAS-2023US029111

PATIENT
  Sex: Male

DRUGS (4)
  1. ENZALUTAMIDE [Suspect]
     Active Substance: ENZALUTAMIDE
     Indication: Prostate cancer
     Dosage: 160 MG, ONCE DAILY (40 MG X 4 TABLETS DAILY)
     Route: 048
     Dates: start: 2020, end: 2020
  2. ENZALUTAMIDE [Suspect]
     Active Substance: ENZALUTAMIDE
     Route: 048
     Dates: start: 2020
  3. ENZALUTAMIDE [Suspect]
     Active Substance: ENZALUTAMIDE
     Route: 048
     Dates: start: 2023
  4. XARELTO [Suspect]
     Active Substance: RIVAROXABAN
     Indication: Product used for unknown indication
     Dosage: UNK UNK, UNKNOWN FREQ.
     Route: 065
     Dates: end: 202305

REACTIONS (15)
  - Dysphagia [Recovered/Resolved]
  - Heart rate decreased [Recovered/Resolved]
  - Sepsis [Recovered/Resolved]
  - Internal haemorrhage [Recovered/Resolved]
  - Staphylococcal infection [Recovered/Resolved]
  - Fungal infection [Recovered/Resolved]
  - Pneumonia [Recovered/Resolved]
  - Oesophageal disorder [Recovered/Resolved]
  - Internal haemorrhage [Recovered/Resolved]
  - Anaemia [Recovered/Resolved]
  - Amnesia [Recovered/Resolved]
  - Fatigue [Recovered/Resolved]
  - Lethargy [Recovered/Resolved]
  - Ill-defined disorder [Unknown]
  - Feeding disorder [Unknown]

NARRATIVE: CASE EVENT DATE: 20200101
